FAERS Safety Report 4664462-7 (Version None)
Quarter: 2005Q2

REPORT INFORMATION
  Report Type: 
  Country: None (occurrence: None)
  Receive Date: 20050518
  Receipt Date: 20050412
  Transmission Date: 20051028
  Serious: Yes (Disabling, Other)
  Sender: FDA-Public Use
  Company Number: PHEH2005US04271

PATIENT
  Age: 50 Year
  Sex: Male

DRUGS (12)
  1. RESTORIL [Concomitant]
     Indication: INSOMNIA
     Dosage: 15 MG, QD, PRN
     Route: 065
     Dates: start: 20020101
  2. ACIPHEX [Concomitant]
     Indication: OESOPHAGEAL STENOSIS
     Dosage: 20 MG, UNK
     Route: 065
  3. PERCOCET [Concomitant]
     Indication: PAIN
     Dosage: 1 TO 2 DOSAGES
     Dates: start: 20000101
  4. TESTOSTERONE [Concomitant]
     Indication: HYPOGONADISM
     Dosage: 5 MG, QD
     Route: 062
     Dates: start: 20020401
  5. CALCITRATE [Concomitant]
     Indication: OSTEOPENIA
     Dates: start: 20020401
  6. PREDNISONE [Concomitant]
     Indication: ADRENAL INSUFFICIENCY
     Dosage: 10 MG, QD
     Route: 048
     Dates: start: 20040801
  7. DEXAMETHASONE [Concomitant]
     Indication: MULTIPLE MYELOMA
     Dosage: 40 X 4D QMONTH - 6WKS
     Route: 065
     Dates: start: 19950101, end: 20040701
  8. SYNTHROID [Concomitant]
     Indication: HYPOTHYROIDISM
     Dosage: 0.09 MG, UNK
     Route: 065
     Dates: start: 19960101
  9. THALIDOMIDE [Concomitant]
     Indication: MULTIPLE MYELOMA
     Dosage: 50/100 ALTERNATING QOD
     Route: 065
     Dates: start: 20020726
  10. AREDIA [Suspect]
     Indication: MULTIPLE MYELOMA
  11. ZOMETA [Suspect]
     Indication: MULTIPLE MYELOMA
     Dosage: 4 MG, QW4
     Route: 042
     Dates: start: 20020401, end: 20040701
  12. STEROIDS NOS [Concomitant]

REACTIONS (6)
  - ABSCESS ORAL [None]
  - ASEPTIC NECROSIS BONE [None]
  - BONE DISORDER [None]
  - IMPAIRED HEALING [None]
  - ORAL SURGERY [None]
  - TOOTH EXTRACTION [None]
